FAERS Safety Report 7207900-8 (Version None)
Quarter: 2010Q4

REPORT INFORMATION
  Report Type: 
  Country: None (occurrence: None)
  Receive Date: 20101221
  Receipt Date: 20101123
  Transmission Date: 20110411
  Serious: Yes (Hospitalization)
  Sender: FDA-Public Use
  Company Number: AUR-APL-2010-02952

PATIENT
  Age: 75 Year
  Sex: Male
  Weight: 50 kg

DRUGS (6)
  1. AMLODIPINE [Suspect]
     Indication: HYPERTENSION
     Dosage: 5MG-ORAL
     Route: 048
     Dates: start: 20021015
  2. ISOSORBIDE DINITRATE [Concomitant]
  3. LOSARTAN POTASSIUM/HYDROCHLOROTHIAZIDE [Concomitant]
  4. NEBIVOLOL HCL [Concomitant]
  5. PIOGLITAZONE [Concomitant]
  6. ATORVASTATIN CALCIUM [Concomitant]

REACTIONS (2)
  - ANGINA PECTORIS [None]
  - LOSS OF CONSCIOUSNESS [None]
